FAERS Safety Report 24610516 (Version 2)
Quarter: 2025Q1

REPORT INFORMATION
  Report Type: Report from Study
  Country: US (occurrence: US)
  Receive Date: 20241112
  Receipt Date: 20250131
  Transmission Date: 20250409
  Serious: No
  Sender: SUNOVION
  Company Number: US-SUMITOMO PHARMA SWITZERLAND GMBH-2024SPA004794

PATIENT

DRUGS (3)
  1. ORGOVYX [Suspect]
     Active Substance: RELUGOLIX
     Indication: Prostate cancer
     Route: 048
  2. ORGOVYX [Suspect]
     Active Substance: RELUGOLIX
     Dosage: 120 MG, QD
     Route: 048
     Dates: start: 20240906
  3. XTANDI [Concomitant]
     Active Substance: ENZALUTAMIDE
     Indication: Prostate cancer
     Dosage: 160 MG, QD
     Route: 065
     Dates: start: 20240906

REACTIONS (11)
  - Neuropathy peripheral [Unknown]
  - Dyspnoea exertional [Unknown]
  - Pollakiuria [Unknown]
  - Gait inability [Unknown]
  - Anal incontinence [Unknown]
  - Blood pressure increased [Unknown]
  - Abdominal distension [Unknown]
  - Dizziness [Unknown]
  - Insomnia [Unknown]
  - Constipation [Unknown]
  - Asthenia [Unknown]
